FAERS Safety Report 14126193 (Version 2)
Quarter: 2018Q1

REPORT INFORMATION
  Report Type: Spontaneous
  Country: JP (occurrence: JP)
  Receive Date: 20171025
  Receipt Date: 20180309
  Transmission Date: 20180508
  Serious: Yes (Death, Life-Threatening, Hospitalization, Disabling, Other)
  Sender: FDA-Public Use
  Company Number: JP-PFIZER INC-2017453661

PATIENT
  Age: 45 Year
  Sex: Female

DRUGS (30)
  1. AVASTIN [Suspect]
     Active Substance: BEVACIZUMAB
     Dosage: 580 MG (15MG/KG), 1X/DAY
     Route: 042
     Dates: start: 20170607, end: 20170607
  2. GRANISETRON [Suspect]
     Active Substance: GRANISETRON
     Dosage: 3 MG, 1X/DAY
     Route: 042
     Dates: start: 20170628, end: 20170628
  3. DECADRON [Suspect]
     Active Substance: DEXAMETHASONE
     Dosage: 4 MG, 1X/DAY
     Route: 048
     Dates: start: 20170511, end: 20170512
  4. EMEND [Suspect]
     Active Substance: APREPITANT
     Dosage: 80 MG, 1X/DAY
     Route: 048
     Dates: start: 20170608, end: 20170609
  5. GEMCITABINE HYDROCHLORIDE. [Suspect]
     Active Substance: GEMCITABINE HYDROCHLORIDE
     Dosage: 300 MG, 1X/DAY
     Route: 042
     Dates: start: 20170705, end: 20170705
  6. AVASTIN [Suspect]
     Active Substance: BEVACIZUMAB
     Dosage: 580 MG (15MG/KG), 1X/DAY
     Route: 042
     Dates: start: 20170628, end: 20170628
  7. GRANISETRON [Suspect]
     Active Substance: GRANISETRON
     Dosage: 3 MG, 1X/DAY
     Route: 042
     Dates: start: 20170607, end: 20170607
  8. GEMCITABINE HYDROCHLORIDE. [Suspect]
     Active Substance: GEMCITABINE HYDROCHLORIDE
     Dosage: 300 MG, 1X/DAY
     Route: 042
     Dates: start: 20170517, end: 20170517
  9. EMEND [Suspect]
     Active Substance: APREPITANT
     Indication: PREMEDICATION
     Dosage: 125 MG, 1X/DAY
     Route: 048
     Dates: start: 20170510, end: 20170510
  10. GEMCITABINE HYDROCHLORIDE. [Suspect]
     Active Substance: GEMCITABINE HYDROCHLORIDE
     Indication: CHEMOTHERAPY
     Dosage: 300 MG, 1X/DAY
     Route: 042
     Dates: start: 20170510, end: 20170510
  11. CARBOPLATIN. [Suspect]
     Active Substance: CARBOPLATIN
     Indication: CHEMOTHERAPY
     Dosage: 490 MG, 1X/DAY
     Route: 042
     Dates: start: 20170510, end: 20170510
  12. DECADRON [Suspect]
     Active Substance: DEXAMETHASONE
     Dosage: 4 MG, 1X/DAY
     Route: 048
     Dates: start: 20170608, end: 20170609
  13. EMEND [Suspect]
     Active Substance: APREPITANT
     Dosage: 125 MG, 1X/DAY
     Route: 048
     Dates: start: 20170628, end: 20170628
  14. GEMCITABINE HYDROCHLORIDE. [Suspect]
     Active Substance: GEMCITABINE HYDROCHLORIDE
     Dosage: 300 MG, 1X/DAY
     Route: 042
     Dates: start: 20170614, end: 20170614
  15. GEMCITABINE HYDROCHLORIDE. [Suspect]
     Active Substance: GEMCITABINE HYDROCHLORIDE
     Dosage: 300 MG, 1X/DAY
     Route: 042
     Dates: start: 20170628, end: 20170628
  16. AVASTIN [Suspect]
     Active Substance: BEVACIZUMAB
     Indication: CHEMOTHERAPY
     Dosage: 580 MG, 1X/DAY
     Route: 042
     Dates: start: 20170510, end: 20170510
  17. GRANISETRON [Suspect]
     Active Substance: GRANISETRON
     Indication: PREMEDICATION
     Dosage: 3 MG, 1X/DAY
     Route: 042
     Dates: start: 20170510, end: 20170510
  18. DECADRON [Suspect]
     Active Substance: DEXAMETHASONE
     Dosage: 6.6 MG, 1X/DAY
     Route: 042
     Dates: start: 20170517, end: 20170517
  19. DECADRON [Suspect]
     Active Substance: DEXAMETHASONE
     Dosage: 4.95 MG, 1X/DAY
     Route: 042
     Dates: start: 20170628, end: 20170628
  20. DECADRON [Suspect]
     Active Substance: DEXAMETHASONE
     Dosage: 4 MG, 1X/DAY
     Route: 048
     Dates: start: 20170629, end: 20170630
  21. EMEND [Suspect]
     Active Substance: APREPITANT
     Dosage: 125 MG, 1X/DAY
     Route: 048
     Dates: start: 20170607, end: 20170607
  22. DECADRON [Suspect]
     Active Substance: DEXAMETHASONE
     Indication: PREMEDICATION
     Dosage: 4.95 MG, 1X/DAY
     Route: 042
     Dates: start: 20170510, end: 20170510
  23. GEMCITABINE HYDROCHLORIDE. [Suspect]
     Active Substance: GEMCITABINE HYDROCHLORIDE
     Dosage: 300 MG, 1X/DAY
     Route: 042
     Dates: start: 20170607, end: 20170607
  24. CARBOPLATIN. [Suspect]
     Active Substance: CARBOPLATIN
     Dosage: 490 MG, 1X/DAY
     Route: 042
     Dates: start: 20170607, end: 20170607
  25. CARBOPLATIN. [Suspect]
     Active Substance: CARBOPLATIN
     Dosage: 490 MG, 1X/DAY
     Route: 042
     Dates: start: 20170628, end: 20170628
  26. EMEND [Suspect]
     Active Substance: APREPITANT
     Dosage: 80 MG, 1X/DAY
     Route: 048
     Dates: start: 20170511, end: 20170512
  27. EMEND [Suspect]
     Active Substance: APREPITANT
     Dosage: 80 MG, 1X/DAY
     Route: 048
     Dates: start: 20170629, end: 20170630
  28. DECADRON [Suspect]
     Active Substance: DEXAMETHASONE
     Dosage: 4.95 MG, 1X/DAY
     Route: 042
     Dates: start: 20170607, end: 20170607
  29. DECADRON [Suspect]
     Active Substance: DEXAMETHASONE
     Dosage: 6.6 MG, 1X/DAY
     Route: 042
     Dates: start: 20170614, end: 20170614
  30. DECADRON [Suspect]
     Active Substance: DEXAMETHASONE
     Dosage: 6.6 MG, 1X/DAY
     Route: 042
     Dates: start: 20170705, end: 20170705

REACTIONS (9)
  - Cardiac failure [Fatal]
  - Pleural effusion [Not Recovered/Not Resolved]
  - Ejection fraction decreased [Unknown]
  - Nasopharyngitis [Not Recovered/Not Resolved]
  - Intracardiac thrombus [Not Recovered/Not Resolved]
  - Decreased appetite [Unknown]
  - Ventricular tachycardia [Unknown]
  - Cardiomegaly [Not Recovered/Not Resolved]
  - Dyspnoea [Not Recovered/Not Resolved]

NARRATIVE: CASE EVENT DATE: 20170726
